FAERS Safety Report 25409075 (Version 2)
Quarter: 2025Q2

REPORT INFORMATION
  Report Type: Spontaneous
  Country: US (occurrence: US)
  Receive Date: 20250607
  Receipt Date: 20250610
  Transmission Date: 20250717
  Serious: No
  Sender: UNITED THERAPEUTICS
  Company Number: US-UNITED THERAPEUTICS-UNT-2025-019119

PATIENT
  Age: 67 Year
  Sex: Male
  Weight: 85.714 kg

DRUGS (3)
  1. REMODULIN [Suspect]
     Active Substance: TREPROSTINIL
     Indication: Pulmonary arterial hypertension
  2. REMODULIN [Suspect]
     Active Substance: TREPROSTINIL
  3. SOTATERCEPT [Concomitant]
     Active Substance: SOTATERCEPT
     Indication: Product used for unknown indication

REACTIONS (4)
  - Device maintenance issue [Not Recovered/Not Resolved]
  - Device breakage [Unknown]
  - Unintentional medical device removal [Unknown]
  - Device issue [Not Recovered/Not Resolved]

NARRATIVE: CASE EVENT DATE: 20250530
